FAERS Safety Report 5011010-8 (Version None)
Quarter: 2006Q2

REPORT INFORMATION
  Report Type: 
  Country: None (occurrence: None)
  Receive Date: 20060523
  Receipt Date: 20060509
  Transmission Date: 20061013
  Serious: Yes (Hospitalization)
  Sender: FDA-Public Use
  Company Number: 2006P1000253

PATIENT
  Age: 51 Year
  Sex: Female

DRUGS (11)
  1. RETEPLASE (RETEPLASE) [Suspect]
     Indication: ACUTE MYOCARDIAL INFARCTION
     Dosage: IV
     Route: 042
     Dates: start: 20060202
  2. REOPRO [Suspect]
     Indication: ACUTE MYOCARDIAL INFARCTION
     Dosage: IV
     Route: 042
     Dates: start: 20060202
  3. TRANDOLAPRIL [Concomitant]
  4. ASPIRIN [Concomitant]
  5. BISOPROLOL [Concomitant]
  6. ATORVASTATIN CALCIUM [Concomitant]
  7. FAMOTIDINE [Concomitant]
  8. CLOPIDOGREL [Concomitant]
  9. CLEXANE [Concomitant]
  10. OMEPRAZOLE [Concomitant]
  11. TICLODIPINE [Concomitant]

REACTIONS (7)
  - CORONARY ARTERY OCCLUSION [None]
  - CORONARY ARTERY STENOSIS [None]
  - EJECTION FRACTION DECREASED [None]
  - MITRAL VALVE INCOMPETENCE [None]
  - PELVIC VENOUS THROMBOSIS [None]
  - THROMBOPHLEBITIS [None]
  - VASCULAR PSEUDOANEURYSM [None]
